FAERS Safety Report 9014320 (Version 1)
Quarter: 2013Q1

REPORT INFORMATION
  Report Type: Spontaneous
  Country: FR (occurrence: FR)
  Receive Date: 20130115
  Receipt Date: 20130115
  Transmission Date: 20140127
  Serious: Yes (Hospitalization)
  Sender: FDA-Public Use
  Company Number: FR-PFIZER INC-2013008191

PATIENT
  Age: 82 Year
  Sex: Female

DRUGS (8)
  1. TRIFLUCAN [Suspect]
     Dosage: UNK
     Route: 048
     Dates: start: 20121029, end: 201211
  2. COUMADINE [Interacting]
     Indication: ATRIAL FIBRILLATION
     Dosage: UNK
     Route: 048
  3. CORDARONE [Concomitant]
  4. ATENOLOL [Concomitant]
  5. LERCAN [Concomitant]
  6. PAROXETINE [Concomitant]
  7. SERESTA [Concomitant]
  8. INIPOMP [Concomitant]

REACTIONS (2)
  - Drug interaction [Recovered/Resolved]
  - International normalised ratio increased [Recovered/Resolved]
